FAERS Safety Report 8240961-6 (Version None)
Quarter: 2012Q1

REPORT INFORMATION
  Report Type: 
  Country: None (occurrence: None)
  Receive Date: 20120328
  Receipt Date: 20120320
  Transmission Date: 20120608
  Serious: Yes (Other)
  Sender: FDA-Public Use
  Company Number: CA-ABBOTT-12P-028-0910733-00

PATIENT
  Sex: Male
  Weight: 75.818 kg

DRUGS (1)
  1. LUPRON DEPOT [Suspect]
     Indication: PROSTATE CANCER
     Dates: start: 20111128

REACTIONS (4)
  - DIZZINESS [None]
  - FLANK PAIN [None]
  - PROSTATE CANCER METASTATIC [None]
  - HYPOTENSION [None]
